FAERS Safety Report 14539162 (Version 1)
Quarter: 2018Q1

REPORT INFORMATION
  Report Type: Spontaneous
  Country: US (occurrence: US)
  Receive Date: 20180216
  Receipt Date: 20180216
  Transmission Date: 20180509
  Serious: Yes (Other)
  Sender: FDA-Public Use
  Company Number: US-B.I. PHARMACEUTICALS,INC./RIDGEFIELD-2018-BI-007974

PATIENT
  Sex: Male
  Weight: 112.04 kg

DRUGS (32)
  1. PRADAXA [Suspect]
     Active Substance: DABIGATRAN ETEXILATE MESYLATE
     Indication: PRODUCT USED FOR UNKNOWN INDICATION
     Dosage: 180 CAP?REFILL-3
     Route: 048
     Dates: start: 20160715
  2. DILTIAZEM HYDROCHLORIDE. [Concomitant]
     Active Substance: DILTIAZEM HYDROCHLORIDE
     Indication: PRODUCT USED FOR UNKNOWN INDICATION
     Dosage: REFILL-0
     Route: 048
     Dates: start: 19000101
  3. FUROSEMIDE. [Concomitant]
     Active Substance: FUROSEMIDE
     Indication: PRODUCT USED FOR UNKNOWN INDICATION
     Dosage: REFILL-3?90  TABLET
     Route: 048
     Dates: start: 20170505
  4. NITROGLYCERIN. [Concomitant]
     Active Substance: NITROGLYCERIN
     Indication: CHEST PAIN
     Dosage: PLACE TABLET UNDER THE TONGUE EVERY 5 MIN UP TO 3 DOSES.?25 TAB?REFILL 2
     Route: 060
     Dates: start: 20161026
  5. VYTORIN [Concomitant]
     Active Substance: EZETIMIBE\SIMVASTATIN
     Indication: PRODUCT USED FOR UNKNOWN INDICATION
     Dosage: REFILL-3?90 TAB?10-40 MG
     Route: 048
     Dates: start: 20170509
  6. METFORMIN HCL [Concomitant]
     Active Substance: METFORMIN HYDROCHLORIDE
     Indication: PRODUCT USED FOR UNKNOWN INDICATION
     Dosage: REFILL-3?180 TAB
     Route: 048
     Dates: end: 20151125
  7. ASPIRIN. [Concomitant]
     Active Substance: ASPIRIN
     Dosage: REFILL-0?SUFFICIENT TAB
     Route: 048
     Dates: end: 20160601
  8. FENOFIBRATE. [Concomitant]
     Active Substance: FENOFIBRATE
     Indication: PRODUCT USED FOR UNKNOWN INDICATION
     Dosage: REFILL-1?90 TAB
     Route: 048
     Dates: start: 20120611
  9. AMITIZA [Concomitant]
     Active Substance: LUBIPROSTONE
     Indication: PRODUCT USED FOR UNKNOWN INDICATION
     Dosage: REFILL-0?SUFFICIENT CAPSULE
     Route: 048
     Dates: start: 20121101, end: 20141125
  10. ATORVASTATIN CALCIUM. [Concomitant]
     Active Substance: ATORVASTATIN CALCIUM
     Indication: PRODUCT USED FOR UNKNOWN INDICATION
     Dosage: REFILL-3?90 TAB
     Route: 048
     Dates: start: 20161209, end: 20170309
  11. DICYCLOMINE HCL [Concomitant]
     Active Substance: DICYCLOMINE HYDROCHLORIDE
     Indication: PRODUCT USED FOR UNKNOWN INDICATION
     Dosage: REFILL-0?SUFFICIENT CAPSULE
     Route: 048
     Dates: end: 20140530
  12. MINOCYCLINE HCL [Concomitant]
     Active Substance: MINOCYCLINE HYDROCHLORIDE
     Dosage: REFILL-0?28 TAB
     Route: 048
     Dates: start: 20170609
  13. AMITIZA [Concomitant]
     Active Substance: LUBIPROSTONE
     Dosage: REFILL-0?SUFFICIENT CAPSULE
     Route: 048
     Dates: end: 20161208
  14. DILTIAZEM HCL [Concomitant]
     Active Substance: DILTIAZEM HYDROCHLORIDE
     Indication: PRODUCT USED FOR UNKNOWN INDICATION
     Dosage: REFILL- 3?270 TAB
     Route: 048
     Dates: start: 20140319, end: 20150526
  15. GLIMEPIRIDE. [Concomitant]
     Active Substance: GLIMEPIRIDE
     Indication: PRODUCT USED FOR UNKNOWN INDICATION
     Dosage: SUFFICIENT TABLET, REFILL-0
     Route: 048
  16. POTASSIUM CHLORIDE. [Concomitant]
     Active Substance: POTASSIUM CHLORIDE
     Indication: PRODUCT USED FOR UNKNOWN INDICATION
     Dosage: REFILL-3?90 TABLETS
     Route: 048
     Dates: start: 20170505
  17. CHOLINE FENOFIBRATE [Concomitant]
     Active Substance: CHOLINE FENOFIBRATE
     Indication: PRODUCT USED FOR UNKNOWN INDICATION
     Dosage: REFILL-0?SUFFICIENT CAPSULE
     Route: 048
     Dates: end: 20130715
  18. VITAMIN D3 [Concomitant]
     Active Substance: CHOLECALCIFEROL
     Indication: PRODUCT USED FOR UNKNOWN INDICATION
     Dosage: REFILL-0?SUFFICIENT CAPSULE
     Route: 048
     Dates: end: 20130715
  19. DILTIAZEM HCL [Concomitant]
     Active Substance: DILTIAZEM HYDROCHLORIDE
     Dosage: REFILL-3?270 TAB
     Route: 048
     Dates: start: 20160120, end: 20170504
  20. DILTIAZEM HCL [Concomitant]
     Active Substance: DILTIAZEM HYDROCHLORIDE
     Dosage: REFILL-1?90 CAP
     Route: 048
     Dates: end: 20160120
  21. DILTIAZEM HCL [Concomitant]
     Active Substance: DILTIAZEM HYDROCHLORIDE
     Dosage: REFILL-0?SUFFICENT CAP
     Route: 048
     Dates: end: 20140319
  22. DIGOXIN. [Concomitant]
     Active Substance: DIGOXIN
     Indication: PRODUCT USED FOR UNKNOWN INDICATION
     Dosage: QTY-90 TABLTS, REFILLS 0
     Route: 048
     Dates: start: 19000101
  23. SIMVASTATIN. [Concomitant]
     Active Substance: SIMVASTATIN
     Indication: PRODUCT USED FOR UNKNOWN INDICATION
     Dosage: REFILL-3?90 TAB
     Route: 048
     Dates: start: 20130122, end: 20130402
  24. LISINOPRIL. [Concomitant]
     Active Substance: LISINOPRIL
     Indication: BLOOD PRESSURE MEASUREMENT
     Dosage: REFILL-3?90 TAB
     Route: 048
     Dates: start: 20130402, end: 20130715
  25. PANTOPRAZOLE SODIUM. [Concomitant]
     Active Substance: PANTOPRAZOLE SODIUM
     Indication: PRODUCT USED FOR UNKNOWN INDICATION
     Dosage: REFILL-0?SUFFICIENT TAB
     Route: 048
     Dates: end: 20140530
  26. ASPIRIN. [Concomitant]
     Active Substance: ASPIRIN
     Indication: PRODUCT USED FOR UNKNOWN INDICATION
     Dosage: REFILL-11?30 TAB
     Route: 048
     Dates: start: 20160601
  27. OMEPRAZOLE. [Concomitant]
     Active Substance: OMEPRAZOLE
     Indication: PRODUCT USED FOR UNKNOWN INDICATION
     Dosage: REFILL-0?SUFFICIENT CUPSULE
     Route: 048
  28. CETRIZINE [Concomitant]
     Active Substance: CETIRIZINE HYDROCHLORIDE
     Indication: PRODUCT USED FOR UNKNOWN INDICATION
     Dosage: REFILL-0?SUFFICENT TAB
     Route: 048
     Dates: end: 20130402
  29. LISINOPRIL. [Concomitant]
     Active Substance: LISINOPRIL
     Dosage: REFILL-3?90 TAB
     Route: 048
     Dates: start: 20170220, end: 20170505
  30. MINOCYCLINE HCL [Concomitant]
     Active Substance: MINOCYCLINE HYDROCHLORIDE
     Indication: PRODUCT USED FOR UNKNOWN INDICATION
     Dosage: REFILL-0,?14 CAPSULE
     Route: 048
     Dates: start: 20170524
  31. SOTALOL HCL [Concomitant]
     Active Substance: SOTALOL
     Indication: PRODUCT USED FOR UNKNOWN INDICATION
     Dosage: REFILL-0,3?180 TABLET
     Route: 048
     Dates: start: 20141210, end: 20141210
  32. VYTORIN [Concomitant]
     Active Substance: EZETIMIBE\SIMVASTATIN
     Dosage: REFILL-1?10-40 MG?90 TAB
     Route: 048
     Dates: start: 20121008, end: 20130122

REACTIONS (2)
  - Bladder cancer [Unknown]
  - Dyspnoea exertional [Unknown]
